FAERS Safety Report 8380321-0 (Version None)
Quarter: 2012Q2

REPORT INFORMATION
  Report Type: 
  Country: None (occurrence: None)
  Receive Date: 20120523
  Receipt Date: 20120516
  Transmission Date: 20120825
  Serious: Yes (Other)
  Sender: FDA-Public Use
  Company Number: US-PFIZER INC-2012119747

PATIENT
  Age: 56 Year
  Sex: Female
  Weight: 72.562 kg

DRUGS (3)
  1. XALATAN [Suspect]
     Indication: GLAUCOMA
     Dosage: UNK
     Route: 047
     Dates: start: 19990101
  2. ZITHROMAX [Suspect]
     Indication: RESPIRATORY DISORDER
     Dosage: UNK, 1X/DAY
     Route: 048
     Dates: start: 20030101, end: 20030101
  3. DIAZEPAM [Concomitant]
     Indication: FIBROMYALGIA
     Dosage: UNK, AS NEEDED

REACTIONS (2)
  - RESPIRATORY DISORDER [None]
  - DEAFNESS [None]
